FAERS Safety Report 7402714-8 (Version None)
Quarter: 2011Q2

REPORT INFORMATION
  Report Type: 
  Country: None (occurrence: None)
  Receive Date: 20110408
  Receipt Date: 20110401
  Transmission Date: 20111010
  Serious: Yes (Hospitalization)
  Sender: FDA-Public Use
  Company Number: JP-ROCHE-755767

PATIENT
  Sex: Male
  Weight: 29.3 kg

DRUGS (34)
  1. ACTEMRA [Suspect]
     Route: 041
     Dates: start: 20090525, end: 20090930
  2. GASMOTIN [Concomitant]
     Dosage: GASMOTIN (MOSAPRIDE CITRATE).
     Route: 048
  3. FAMOTIDINE [Concomitant]
     Route: 042
     Dates: start: 20081016, end: 20081024
  4. VOLTAREN [Concomitant]
     Route: 048
  5. ACTEMRA [Suspect]
     Route: 041
     Dates: start: 20081125, end: 20090511
  6. ACTEMRA [Suspect]
     Route: 041
     Dates: start: 20091001, end: 20091123
  7. VOLTAREN [Suspect]
     Indication: JUVENILE ARTHRITIS
     Route: 048
     Dates: end: 20110103
  8. MUCODYNE [Concomitant]
     Route: 048
     Dates: end: 20081125
  9. LEFTOSE [Concomitant]
     Route: 048
     Dates: start: 20081208
  10. RENIVACE [Concomitant]
     Dosage: RENIVACE (ENALAPRIL MALEATE)
     Route: 048
     Dates: end: 20090120
  11. RASENAZOLIN [Concomitant]
     Route: 042
     Dates: start: 20081015, end: 20081017
  12. NEUROVITAN [Concomitant]
     Route: 048
     Dates: start: 20081125, end: 20090615
  13. PREDONINE [Suspect]
     Indication: JUVENILE ARTHRITIS
     Dosage: NOTE: DOSAGE IS UNCERTAIN
     Route: 048
  14. PREDONINE [Suspect]
     Route: 048
     Dates: start: 20101214, end: 20101216
  15. CLARITHROMYCIN [Concomitant]
     Route: 048
     Dates: start: 20081222
  16. ERYTHROCIN LACTOBIONATE [Concomitant]
     Dosage: ERYTHROCIN (ERYTHROMYCIN STEARATE)
     Route: 048
     Dates: end: 20081125
  17. LEFTOSE [Concomitant]
     Dosage: LEFTOSE: LYSOZYME HYDROCHLORIDE
     Route: 048
     Dates: end: 20081125
  18. FERO-GRADUMET [Concomitant]
     Route: 048
     Dates: start: 20080818, end: 20081125
  19. ACTEMRA [Suspect]
     Indication: JUVENILE ARTHRITIS
     Route: 041
     Dates: start: 20070523, end: 20081107
  20. GASTER D [Concomitant]
     Route: 048
     Dates: end: 20090120
  21. RENIVACE [Concomitant]
     Route: 048
     Dates: start: 20110210
  22. PRIMPERAN TAB [Concomitant]
     Route: 042
     Dates: start: 20081016, end: 20081024
  23. ARTIST [Concomitant]
     Route: 048
     Dates: start: 20090511, end: 20090615
  24. VOLTAREN [Suspect]
     Indication: JUVENILE ARTHRITIS
     Route: 048
  25. MUCODYNE [Concomitant]
     Route: 048
     Dates: start: 20081208
  26. PROGRAF [Concomitant]
     Route: 048
     Dates: start: 20101214, end: 20101219
  27. ACTEMRA [Suspect]
     Route: 041
     Dates: start: 20091124
  28. RENIVACE [Concomitant]
     Route: 048
     Dates: start: 20090615, end: 20110209
  29. MAGMITT [Concomitant]
     Route: 048
     Dates: start: 20081002, end: 20081125
  30. BAKTAR [Concomitant]
     Route: 048
     Dates: start: 20101124, end: 20110103
  31. EMPYNASE P [Concomitant]
     Route: 048
     Dates: start: 20101124, end: 20110103
  32. PROGRAF [Concomitant]
     Route: 048
     Dates: start: 20101220
  33. PREDONINE [Suspect]
     Route: 048
     Dates: start: 20101217, end: 20110103
  34. MUCODYNE [Concomitant]
     Route: 048
     Dates: end: 20110103

REACTIONS (5)
  - DUODENAL PERFORATION [None]
  - PERITONITIS [None]
  - HYPOGLYCAEMIA [None]
  - JUVENILE ARTHRITIS [None]
  - DUODENAL ULCER [None]
